FAERS Safety Report 21970422 (Version 1)
Quarter: 2023Q1

REPORT INFORMATION
  Report Type: Spontaneous
  Country: ES (occurrence: ES)
  Receive Date: 20230209
  Receipt Date: 20230209
  Transmission Date: 20230417
  Serious: Yes (Other)
  Sender: FDA-Public Use
  Company Number: ES-NEUROCRINE BIOSCIENCES INC.-2022NBI10044

PATIENT

DRUGS (1)
  1. ONGENTYS [Suspect]
     Active Substance: OPICAPONE
     Indication: Parkinson^s disease
     Dosage: 100 MILLIGRAM
     Route: 065

REACTIONS (3)
  - Apnoea [Unknown]
  - Dysphagia [Unknown]
  - Anxiety [Unknown]
